FAERS Safety Report 17192345 (Version 1)
Quarter: 2019Q4

REPORT INFORMATION
  Report Type: Other
  Country: ES (occurrence: ES)
  Receive Date: 20191223
  Receipt Date: 20191223
  Transmission Date: 20200122
  Serious: Yes (Hospitalization)
  Sender: FDA-Public Use
  Company Number: ES-EMD SERONO-9135914

PATIENT
  Age: 15 Year
  Sex: Female

DRUGS (1)
  1. METFORMIN [Suspect]
     Active Substance: METFORMIN HYDROCHLORIDE
     Indication: SUICIDAL IDEATION

REACTIONS (4)
  - Renal failure [Recovering/Resolving]
  - Hypoglycaemia [Recovering/Resolving]
  - Lactic acidosis [Recovering/Resolving]
  - Intentional overdose [Recovering/Resolving]
